FAERS Safety Report 8759465 (Version 3)
Quarter: 2012Q4

REPORT INFORMATION
  Report Type: 
  Country: US (occurrence: US)
  Receive Date: 20120829
  Receipt Date: 20121016
  Transmission Date: 20130627
  Serious: Yes (Other)
  Sender: FDA-Public Use
  Company Number: US-TEVA-355491USA

PATIENT
  Age: 28 None
  Sex: Male

DRUGS (1)
  1. COPAXONE [Suspect]
     Indication: MULTIPLE SCLEROSIS
     Dates: start: 20120525, end: 20120815

REACTIONS (3)
  - Delusion [Recovered/Resolved]
  - Depression [Recovered/Resolved]
  - Paranoia [Recovered/Resolved]
